FAERS Safety Report 6839562-3 (Version None)
Quarter: 2010Q3

REPORT INFORMATION
  Report Type: 
  Country: None (occurrence: None)
  Receive Date: 20100714
  Receipt Date: 20100218
  Transmission Date: 20110219
  Serious: No
  Sender: FDA-Public Use
  Company Number: A0845210A

PATIENT
  Age: 8 Year
  Sex: Male

DRUGS (1)
  1. FLOVENT [Suspect]
     Indication: ASTHMA
     Route: 055

REACTIONS (2)
  - DERMATITIS [None]
  - RASH [None]
